FAERS Safety Report 9919250 (Version 2)
Quarter: 2014Q1

REPORT INFORMATION
  Report Type: Spontaneous
  Country: JP (occurrence: JP)
  Receive Date: 20140224
  Receipt Date: 20140224
  Transmission Date: 20141002
  Serious: Yes (Disabling)
  Sender: FDA-Public Use
  Company Number: JP-JNJFOC-20131017175

PATIENT
  Age: 64 Year
  Sex: Male
  Weight: 58 kg

DRUGS (7)
  1. XARELTO [Suspect]
     Indication: CEREBROVASCULAR ACCIDENT PROPHYLAXIS
     Route: 048
     Dates: start: 20130901, end: 20131012
  2. XARELTO [Suspect]
     Indication: ATRIAL FIBRILLATION
     Route: 048
     Dates: start: 20130901, end: 20131012
  3. PRONON [Suspect]
     Indication: ATRIAL FIBRILLATION
     Route: 048
     Dates: start: 20130608, end: 20131012
  4. DABIGATRAN ETEXILATE METHANESULFONATE [Suspect]
     Indication: PRODUCT USED FOR UNKNOWN INDICATION
     Route: 048
     Dates: start: 20130608, end: 20130831
  5. PARIET [Concomitant]
     Indication: GASTROOESOPHAGEAL REFLUX DISEASE
     Route: 048
     Dates: start: 20120408, end: 20131221
  6. MAINTATE [Concomitant]
     Indication: ATRIAL FIBRILLATION
     Route: 048
     Dates: start: 20110911
  7. MAINTATE [Concomitant]
     Indication: HYPERTENSION
     Route: 048
     Dates: start: 20110911

REACTIONS (1)
  - Liver disorder [Recovered/Resolved]
